FAERS Safety Report 23023290 (Version 1)
Quarter: 2023Q4

REPORT INFORMATION
  Report Type: Spontaneous
  Country: US (occurrence: US)
  Receive Date: 20231003
  Receipt Date: 20231003
  Transmission Date: 20240109
  Serious: No
  Sender: FDA-Public Use
  Company Number: US-ABBVIE-5430268

PATIENT
  Sex: Male

DRUGS (4)
  1. RESTASIS [Suspect]
     Active Substance: CYCLOSPORINE
     Indication: Product used for unknown indication
     Dosage: 1 DROP
     Route: 047
     Dates: start: 20230808
  2. SYSTANE (HYPROMELLOSE 2910 (4000 MPA.S)) [Concomitant]
     Active Substance: HYPROMELLOSE 2910 (4000 MPA.S)
     Indication: Product used for unknown indication
  3. RETAINE MGD [Concomitant]
     Active Substance: LIGHT MINERAL OIL\MINERAL OIL
     Indication: Product used for unknown indication
     Dates: start: 20230808, end: 20230929
  4. RETAINE MGD [Concomitant]
     Active Substance: LIGHT MINERAL OIL\MINERAL OIL
     Indication: Product used for unknown indication
     Dosage: 4 TIMES PER DAY
     Dates: start: 20230808, end: 20230929

REACTIONS (7)
  - Eye pain [Recovered/Resolved]
  - Periorbital swelling [Recovered/Resolved]
  - Eye irritation [Recovered/Resolved]
  - Blepharitis [Unknown]
  - Ocular hyperaemia [Unknown]
  - Erythema of eyelid [Recovered/Resolved]
  - Eyelid irritation [Unknown]

NARRATIVE: CASE EVENT DATE: 20230101
